FAERS Safety Report 22392968 (Version 1)
Quarter: 2023Q2

REPORT INFORMATION
  Report Type: Spontaneous
  Country: NL (occurrence: NL)
  Receive Date: 20230601
  Receipt Date: 20230601
  Transmission Date: 20230721
  Serious: Yes (Death)
  Sender: FDA-Public Use
  Company Number: None

PATIENT
  Age: 63 Year
  Sex: Male
  Weight: 95 kg

DRUGS (5)
  1. QUETIAPINE [Suspect]
     Active Substance: QUETIAPINE
     Indication: Affective disorder
     Dosage: 50 MILLIGRAM DAILY; 1 X PER DAY 1 PIECE, QUETIAPINE TABLET MGA  50MG / BRAND NAME NOT SPECIFIED
     Dates: start: 20220307
  2. ALPRAZOLAM [Suspect]
     Active Substance: ALPRAZOLAM
     Indication: Anxiety disorder
     Dosage: 1.5 MILLIGRAM DAILY; 3 TIMES A DAY 1 PIECE,  BRAND NAME NOT SPECIFIED
     Route: 065
     Dates: start: 20220307
  3. CITALOPRAM [Suspect]
     Active Substance: CITALOPRAM HYDROBROMIDE
     Indication: Anxiety disorder
     Dosage: 20 MILLIGRAM DAILY; 1 X PER DAY 1 PIECE,  BRAND NAME NOT SPECIFIED
     Route: 065
     Dates: start: 20220214
  4. OLANZAPINE [Concomitant]
     Active Substance: OLANZAPINE
     Indication: Product used for unknown indication
     Dosage: 15 MG (MILLIGRAM)/ BRAND NAME NOT SPECIFIED
  5. OLANZAPINE [Concomitant]
     Active Substance: OLANZAPINE
     Indication: Product used for unknown indication
     Dosage: 10 MG (MILLIGRAM),/ BRAND NAME NOT SPECIFIED

REACTIONS (1)
  - Completed suicide [Fatal]

NARRATIVE: CASE EVENT DATE: 20220315
